FAERS Safety Report 6962682-X (Version None)
Quarter: 2010Q3

REPORT INFORMATION
  Report Type: 
  Country: None (occurrence: None)
  Receive Date: 20100823
  Receipt Date: 20100707
  Transmission Date: 20110219
  Serious: Yes (Hospitalization)
  Sender: FDA-Public Use
  Company Number: 8053765

PATIENT
  Sex: Female
  Weight: 82 kg

DRUGS (2)
  1. CERTOLIZUMAB PEGOL [Suspect]
     Indication: CROHN'S DISEASE
     Dosage: (400 MG 1X/MONTH SUBCUTANEOUS)
     Route: 058
     Dates: start: 20090701
  2. NORVASC [Concomitant]

REACTIONS (1)
  - INTESTINAL OBSTRUCTION [None]
